FAERS Safety Report 8481039-6 (Version None)
Quarter: 2012Q3

REPORT INFORMATION
  Report Type: 
  Country: None (occurrence: None)
  Receive Date: 20120702
  Receipt Date: 20120618
  Transmission Date: 20120928
  Serious: Yes (Other)
  Sender: FDA-Public Use
  Company Number: PHEH2012US011387

PATIENT
  Sex: Female

DRUGS (4)
  1. SEROQUEL [Concomitant]
  2. FEMARA [Concomitant]
  3. DIOVAN [Suspect]
  4. HUMULIN R [Concomitant]

REACTIONS (1)
  - DIABETES MELLITUS [None]
